FAERS Safety Report 7660732-9 (Version None)
Quarter: 2011Q3

REPORT INFORMATION
  Report Type: 
  Country: None (occurrence: None)
  Receive Date: 20110805
  Receipt Date: 20101104
  Transmission Date: 20111222
  Serious: No
  Sender: FDA-Public Use
  Company Number: US-ABBOTT-10P-163-0683192-00

PATIENT
  Sex: Male

DRUGS (3)
  1. NIASPAN [Suspect]
     Indication: LOW DENSITY LIPOPROTEIN INCREASED
  2. NIASPAN [Suspect]
     Indication: HIGH DENSITY LIPOPROTEIN DECREASED
  3. LOVAZA [Concomitant]
     Indication: PRODUCT USED FOR UNKNOWN INDICATION

REACTIONS (2)
  - HIGH DENSITY LIPOPROTEIN DECREASED [None]
  - LOW DENSITY LIPOPROTEIN INCREASED [None]
